FAERS Safety Report 18204991 (Version 2)
Quarter: 2024Q2

REPORT INFORMATION
  Report Type: Other
  Country: DE (occurrence: None)
  Receive Date: 20200828
  Receipt Date: 20240404
  Transmission Date: 20240716
  Serious: Yes (Hospitalization)
  Sender: FDA-Public Use
  Company Number: DE-ROCHE-2665031

PATIENT
  Age: 46 Year
  Sex: Female
  Weight: 47 kg

DRUGS (37)
  1. OCREVUS [Suspect]
     Active Substance: OCRELIZUMAB
     Indication: Relapsing multiple sclerosis
     Route: 042
     Dates: start: 20180919, end: 20181004
  2. OCREVUS [Suspect]
     Active Substance: OCRELIZUMAB
     Dosage: MOST RECENT DOSE ADMINISTERED ON: 11/MAR/2020
     Route: 042
     Dates: start: 20190327
  3. RANITIDINE HYDROCHLORIDE [Concomitant]
     Active Substance: RANITIDINE HYDROCHLORIDE
     Indication: Prophylaxis
     Route: 048
     Dates: start: 20180918, end: 20180920
  4. RANITIDINE HYDROCHLORIDE [Concomitant]
     Active Substance: RANITIDINE HYDROCHLORIDE
     Route: 048
     Dates: start: 20181003, end: 20181005
  5. RANITIDINE HYDROCHLORIDE [Concomitant]
     Active Substance: RANITIDINE HYDROCHLORIDE
     Route: 048
     Dates: start: 20190326, end: 20190328
  6. EBASTINE [Concomitant]
     Active Substance: EBASTINE
     Indication: Prophylaxis
     Route: 048
     Dates: start: 20181003, end: 20181005
  7. EBASTINE [Concomitant]
     Active Substance: EBASTINE
     Route: 048
     Dates: start: 20180918, end: 20180920
  8. EBASTINE [Concomitant]
     Active Substance: EBASTINE
     Route: 048
     Dates: start: 20190326, end: 20190328
  9. RENVELA [Concomitant]
     Active Substance: SEVELAMER CARBONATE
     Route: 048
  10. TORSEMIDE [Concomitant]
     Active Substance: TORSEMIDE
     Indication: Hypertension
     Route: 048
  11. MOVICOL [Concomitant]
     Active Substance: POLYETHYLENE GLYCOL 3350\POTASSIUM CHLORIDE\SODIUM BICARBONATE\SODIUM CHLORIDE
     Indication: Constipation
     Dosage: DEFINITION OF THE INTERVAL: AS REQUIRED
     Route: 048
  12. PREDNISOLONE [Concomitant]
     Active Substance: PREDNISOLONE
     Indication: Prophylaxis
     Route: 042
     Dates: start: 20180919, end: 20180919
  13. PREDNISOLONE [Concomitant]
     Active Substance: PREDNISOLONE
     Route: 042
     Dates: start: 20190327, end: 20190327
  14. PREDNISOLONE [Concomitant]
     Active Substance: PREDNISOLONE
     Route: 042
     Dates: start: 20181004, end: 20181004
  15. DREISAVIT N [Concomitant]
     Indication: Hypovitaminosis
     Route: 048
  16. TROSPIUM CHLORIDE [Concomitant]
     Active Substance: TROSPIUM CHLORIDE
     Route: 048
  17. RAMIPRIL [Concomitant]
     Active Substance: RAMIPRIL
     Indication: Hypertension
     Route: 048
  18. SIMVASTATIN [Concomitant]
     Active Substance: SIMVASTATIN
     Route: 048
  19. ASPIRIN [Concomitant]
     Active Substance: ASPIRIN
     Route: 048
     Dates: end: 201912
  20. RENAGEL [Concomitant]
     Active Substance: SEVELAMER HYDROCHLORIDE
     Route: 048
  21. LEVOTHYROXINE SODIUM [Concomitant]
     Active Substance: LEVOTHYROXINE SODIUM
     Route: 048
     Dates: start: 201912
  22. CHOLECALCIFEROL [Concomitant]
     Active Substance: CHOLECALCIFEROL
     Indication: Vitamin D deficiency
     Route: 048
  23. MYFENAX (GERMANY) [Concomitant]
     Indication: Immunosuppression
     Route: 048
  24. INNOHEP [Concomitant]
     Active Substance: TINZAPARIN SODIUM
     Route: 058
     Dates: start: 202006
  25. PFIZER-BIONTECH COVID-19 VACCINE [Concomitant]
     Active Substance: TOZINAMERAN
     Indication: COVID-19 prophylaxis
     Route: 030
     Dates: start: 20210623, end: 20210623
  26. PFIZER-BIONTECH COVID-19 VACCINE [Concomitant]
     Active Substance: TOZINAMERAN
     Route: 030
     Dates: start: 20210602, end: 20210602
  27. PFIZER-BIONTECH COVID-19 VACCINE [Concomitant]
     Active Substance: TOZINAMERAN
     Route: 030
     Dates: start: 20210811, end: 20210811
  28. MODERNA COVID-19 VACCINE [Concomitant]
     Active Substance: ELASOMERAN
     Indication: COVID-19 prophylaxis
     Route: 030
     Dates: start: 20211208, end: 20211208
  29. HEPARIN [Concomitant]
     Active Substance: HEPARIN SODIUM
     Indication: Deep vein thrombosis
  30. EVUSHELD [Concomitant]
     Active Substance: CILGAVIMAB\TIXAGEVIMAB
     Indication: COVID-19 prophylaxis
     Route: 030
     Dates: start: 20220408, end: 20220408
  31. TACROLIMUS [Concomitant]
     Active Substance: TACROLIMUS
     Route: 048
  32. PROGRAF [Concomitant]
     Active Substance: TACROLIMUS
     Indication: Immunosuppression
     Route: 048
  33. VIMPAT [Concomitant]
     Active Substance: LACOSAMIDE
     Route: 048
     Dates: start: 202009
  34. MYFORTIC [Concomitant]
     Active Substance: MYCOPHENOLATE SODIUM
     Indication: Prophylaxis
     Route: 048
  35. FLUVASTATIN [Concomitant]
     Active Substance: FLUVASTATIN SODIUM
     Indication: Hypercholesterolaemia
     Route: 048
  36. COTRIM [Concomitant]
     Active Substance: SULFAMETHOXAZOLE\TRIMETHOPRIM
     Indication: Infection prophylaxis
     Route: 048
  37. PANTOZOL [Concomitant]
     Active Substance: PANTOPRAZOLE SODIUM
     Route: 048

REACTIONS (1)
  - Normochromic normocytic anaemia [Recovered/Resolved]

NARRATIVE: CASE EVENT DATE: 20200812
